FAERS Safety Report 8559017 (Version 8)
Quarter: 2013Q4

REPORT INFORMATION
  Report Type: Spontaneous
  Country: US (occurrence: US)
  Receive Date: 20120511
  Receipt Date: 20131023
  Transmission Date: 20140711
  Serious: Yes (Hospitalization)
  Sender: FDA-Public Use
  Company Number: US-PFIZER INC-2012111061

PATIENT
  Age: 72 Year
  Sex: Female
  Weight: 86.17 kg

DRUGS (1)
  1. CELEBREX [Suspect]
     Indication: FRACTURE
     Dosage: 200 MG, 2X/DAY

REACTIONS (8)
  - Fall [Unknown]
  - Hip fracture [Unknown]
  - Blood cholesterol increased [Unknown]
  - Limb discomfort [Not Recovered/Not Resolved]
  - Pain [Not Recovered/Not Resolved]
  - Aversion [Unknown]
  - Nausea [Unknown]
  - Malaise [Unknown]
